FAERS Safety Report 4677390-8 (Version None)
Quarter: 2005Q2

REPORT INFORMATION
  Report Type: 
  Country: None (occurrence: None)
  Receive Date: 20050526
  Receipt Date: 20050526
  Transmission Date: 20051028
  Serious: No
  Sender: FDA-Public Use
  Company Number: None

PATIENT
  Age: 54 Year
  Sex: Male
  Weight: 125 kg

DRUGS (3)
  1. ASPIRIN [Suspect]
     Indication: CEREBROVASCULAR ACCIDENT PROPHYLAXIS
     Dosage: 81 MG PO QD
     Route: 048
     Dates: start: 20041228, end: 20050420
  2. ASPIRIN [Suspect]
     Indication: HEADACHE
     Dosage: 81 MG PO QD
     Route: 048
     Dates: start: 20041228, end: 20050420
  3. ASPIRIN [Suspect]
     Indication: PROPHYLAXIS
     Dosage: 81 MG PO QD
     Route: 048
     Dates: start: 20041228, end: 20050420

REACTIONS (2)
  - JOINT SWELLING [None]
  - OEDEMA [None]
